FAERS Safety Report 22335523 (Version 1)
Quarter: 2023Q2

REPORT INFORMATION
  Report Type: Spontaneous
  Country: LK (occurrence: LK)
  Receive Date: 20230518
  Receipt Date: 20230518
  Transmission Date: 20230721
  Serious: Yes (Hospitalization, Other)
  Sender: FDA-Public Use
  Company Number: LK-MACLEODS PHARMACEUTICALS US LTD-MAC2023041327

PATIENT

DRUGS (2)
  1. TAMSULOSIN [Suspect]
     Active Substance: TAMSULOSIN
     Indication: Prostatic obstruction
     Dosage: UNK
     Route: 065
  2. NEOSTIGMINE [Suspect]
     Active Substance: NEOSTIGMINE
     Indication: Impaired gastric emptying
     Dosage: 0.4 MILLIGRAM, EVERY 1 HOUR (FOR 4 H AND REPEATED AFTER 6 H FOR TWO DAYS)
     Route: 042

REACTIONS (1)
  - Urinary retention [Unknown]
